FAERS Safety Report 23494691 (Version 1)
Quarter: 2024Q1

REPORT INFORMATION
  Report Type: Spontaneous
  Country: US (occurrence: None)
  Receive Date: 20240206
  Receipt Date: 20240206
  Transmission Date: 20240409
  Serious: Yes (Other)
  Sender: FDA-Public Use
  Company Number: None

PATIENT
  Age: 60 Year
  Sex: Female
  Weight: 72 kg

DRUGS (1)
  1. METRONIDAZOLE VAGINAL GEL, 0.75% [Suspect]
     Active Substance: METRONIDAZOLE
     Indication: Bacterial vaginosis
     Dosage: FREQUENCY : AT BEDTIME;?
     Route: 067
     Dates: start: 20240202, end: 20240205

REACTIONS (5)
  - Rash erythematous [None]
  - Blister [None]
  - Vulvovaginal pruritus [None]
  - Diarrhoea [None]
  - Therapy cessation [None]

NARRATIVE: CASE EVENT DATE: 20240205
